FAERS Safety Report 10080960 (Version 1)
Quarter: 2014Q2

REPORT INFORMATION
  Report Type: Spontaneous
  Country: US (occurrence: US)
  Receive Date: 20140416
  Receipt Date: 20140416
  Transmission Date: 20141212
  Serious: No
  Sender: FDA-Public Use
  Company Number: US-PFIZER INC-2014102097

PATIENT
  Age: 52 Year
  Sex: Male

DRUGS (2)
  1. SUTENT [Suspect]
     Indication: RENAL CANCER
     Dosage: 50 MG, CYCLIC (ONCE DAILY FOR 28 DAYS)
     Route: 048
     Dates: start: 20130713
  2. VICODIN [Concomitant]
     Dosage: UNK

REACTIONS (1)
  - Nausea [Unknown]
